FAERS Safety Report 8180292-6 (Version None)
Quarter: 2012Q1

REPORT INFORMATION
  Report Type: 
  Country: None (occurrence: None)
  Receive Date: 20120215
  Receipt Date: 20120213
  Transmission Date: 20120608
  Serious: Yes (Other)
  Sender: FDA-Public Use
  Company Number: 2012031080

PATIENT
  Age: 49 Year
  Sex: Male

DRUGS (2)
  1. ZOLPIDEM [Concomitant]
  2. PRIVIGEN [Suspect]
     Indication: CHRONIC INFLAMMATORY DEMYELINATING POLYRADICULONEUROPATHY
     Dosage: 30 G 5X/DAY
     Route: 042
     Dates: start: 20111216, end: 20111216

REACTIONS (4)
  - CUTIS LAXA [None]
  - ECZEMA [None]
  - PRURITUS GENERALISED [None]
  - OFF LABEL USE [None]
